FAERS Safety Report 15670963 (Version 1)
Quarter: 2018Q4

REPORT INFORMATION
  Report Type: Spontaneous
  Country: JP (occurrence: JP)
  Receive Date: 20181129
  Receipt Date: 20181129
  Transmission Date: 20190205
  Serious: Yes (Other)
  Sender: FDA-Public Use
  Company Number: PHJP2018JP007596

PATIENT
  Age: 66 Year
  Sex: Male
  Weight: 52 kg

DRUGS (7)
  1. JAKAVI TABLETS [Suspect]
     Active Substance: RUXOLITINIB
     Dosage: 8 DF, UNK
     Route: 048
     Dates: end: 201511
  2. JAKAVI TABLETS [Suspect]
     Active Substance: RUXOLITINIB
     Dosage: 10 MG, UNK
     Route: 048
     Dates: start: 201609, end: 201610
  3. JAKAVI TABLETS [Suspect]
     Active Substance: RUXOLITINIB
     Dosage: 30 MG, UNK
     Route: 048
     Dates: start: 201610
  4. JAKAVI TABLETS [Suspect]
     Active Substance: RUXOLITINIB
     Indication: MYELOFIBROSIS
     Dosage: 20 MG, UNK
     Route: 048
     Dates: start: 20141001
  5. HYDREA [Concomitant]
     Active Substance: HYDROXYUREA
     Indication: MYELOFIBROSIS
     Dosage: UNK
     Route: 065
  6. JAKAVI TABLETS [Suspect]
     Active Substance: RUXOLITINIB
     Dosage: 6 DF, UNK
     Route: 048
     Dates: start: 201511
  7. JADENU [Suspect]
     Active Substance: DEFERASIROX
     Indication: SERUM FERRITIN INCREASED
     Dosage: UNK
     Route: 048

REACTIONS (11)
  - Pancytopenia [Not Recovered/Not Resolved]
  - Malaise [Unknown]
  - Serum ferritin increased [Unknown]
  - Quality of life decreased [Recovering/Resolving]
  - Myelofibrosis [Unknown]
  - Hepatosplenomegaly [Unknown]
  - Therapeutic response decreased [Recovering/Resolving]
  - Discomfort [Unknown]
  - Anaemia [Unknown]
  - Haemoglobin decreased [Unknown]
  - Decreased appetite [Unknown]

NARRATIVE: CASE EVENT DATE: 201609
